FAERS Safety Report 10580105 (Version 2)
Quarter: 2015Q2

REPORT INFORMATION
  Report Type: Spontaneous
  Country: US (occurrence: US)
  Receive Date: 20141112
  Receipt Date: 20150501
  Transmission Date: 20150821
  Serious: Yes (Other)
  Sender: FDA-Public Use
  Company Number: US-PFIZER INC-2014307461

PATIENT
  Age: 56 Year
  Sex: Male

DRUGS (3)
  1. XANAX [Suspect]
     Active Substance: ALPRAZOLAM
     Indication: NERVOUSNESS
     Dosage: 2 MG, (AS NEEDED) (2 MG X 2 DAILY )
  2. VIAGRA [Concomitant]
     Active Substance: SILDENAFIL CITRATE
     Dosage: UNK
  3. XANAX [Suspect]
     Active Substance: ALPRAZOLAM
     Indication: PANIC ATTACK
     Dosage: 2 MG, 3X/DAY

REACTIONS (8)
  - Back pain [Not Recovered/Not Resolved]
  - Blood cholesterol increased [Recovered/Resolved]
  - Anxiety [Recovering/Resolving]
  - Panic attack [Recovered/Resolved]
  - Sleep disorder [Recovered/Resolved]
  - Malaise [Recovered/Resolved]
  - Back disorder [Recovering/Resolving]
  - Laboratory test abnormal [Recovered/Resolved]

NARRATIVE: CASE EVENT DATE: 201410
